FAERS Safety Report 16432495 (Version 2)
Quarter: 2019Q2

REPORT INFORMATION
  Report Type: Spontaneous
  Country: US (occurrence: US)
  Receive Date: 20190614
  Receipt Date: 20190621
  Transmission Date: 20190711
  Serious: Yes (Hospitalization, Other)
  Sender: FDA-Public Use
  Company Number: US-ALEXION PHARMACEUTICALS INC.-A201908948

PATIENT
  Age: 35 Year
  Sex: Female

DRUGS (1)
  1. SOLIRIS [Suspect]
     Active Substance: ECULIZUMAB
     Indication: PRODUCT USED FOR UNKNOWN INDICATION
     Dosage: UNK
     Route: 042

REACTIONS (11)
  - Anaphylactic shock [Unknown]
  - Cholecystectomy [Unknown]
  - Nausea [Unknown]
  - Injection site bruising [Unknown]
  - Headache [Unknown]
  - Vomiting [Unknown]
  - Drug hypersensitivity [Unknown]
  - Infusion site pain [Unknown]
  - Fatigue [Unknown]
  - Asthenia [Unknown]
  - Organ failure [Unknown]
